FAERS Safety Report 14506845 (Version 1)
Quarter: 2018Q1

REPORT INFORMATION
  Report Type: Spontaneous
  Country: US (occurrence: US)
  Receive Date: 20180207
  Receipt Date: 20180207
  Transmission Date: 20180509
  Serious: No
  Sender: FDA-Public Use
  Company Number: None

PATIENT
  Age: 65 Year
  Sex: Female

DRUGS (1)
  1. SIMPONI [Suspect]
     Active Substance: GOLIMUMAB

REACTIONS (9)
  - Migraine [None]
  - Fatigue [None]
  - Asthenia [None]
  - Hyperhidrosis [None]
  - Cough [None]
  - Decreased appetite [None]
  - Increased tendency to bruise [None]
  - Apparent death [None]
  - Visual impairment [None]

NARRATIVE: CASE EVENT DATE: 20180207
